FAERS Safety Report 7486440-5 (Version None)
Quarter: 2011Q2

REPORT INFORMATION
  Report Type: 
  Country: None (occurrence: None)
  Receive Date: 20110517
  Receipt Date: 20110511
  Transmission Date: 20111010
  Serious: Yes (Hospitalization, Other)
  Sender: FDA-Public Use
  Company Number: DK-PFIZER INC-2011092327

PATIENT
  Age: 79 Year
  Sex: Male

DRUGS (2)
  1. RAMIPRIL [Suspect]
     Dosage: UNK
  2. OPTIRAY 300 [Suspect]
     Indication: COMPUTERISED TOMOGRAM
     Dosage: UNK
     Dates: start: 20100804

REACTIONS (4)
  - RENAL FAILURE [None]
  - BLADDER CATHETERISATION [None]
  - EMOTIONAL DISTRESS [None]
  - PNEUMONIA [None]
